FAERS Safety Report 11915352 (Version 5)
Quarter: 2017Q2

REPORT INFORMATION
  Report Type: Report from Study
  Country: PA (occurrence: PA)
  Receive Date: 20160114
  Receipt Date: 20170607
  Transmission Date: 20170829
  Serious: Yes (Hospitalization)
  Sender: FDA-Public Use
  Company Number: PA-ROCHE-1693264

PATIENT
  Age: 59 Year
  Sex: Female
  Weight: 83 kg

DRUGS (14)
  1. PERTUZUMAB [Suspect]
     Active Substance: PERTUZUMAB
     Dosage: RECENT DOSE PRIOR TO EVENT: 05/JAN/2016?MAINTENANCE DOSE
     Route: 042
     Dates: start: 20150520
  2. PARACETAMOL [Concomitant]
     Active Substance: ACETAMINOPHEN
     Dosage: CHEMOTHERAPY PREMEDICATION
     Route: 065
     Dates: start: 20160105, end: 20160105
  3. PARACETAMOL [Concomitant]
     Active Substance: ACETAMINOPHEN
     Dosage: CHEMOTHERAPY PREMEDICATION
     Route: 065
     Dates: start: 20160126, end: 20160126
  4. DIPHENHYDRAMINE. [Concomitant]
     Active Substance: DIPHENHYDRAMINE
     Dosage: CHEMOTHERAPY PREMEDICATION
     Route: 065
     Dates: start: 20160126, end: 20160126
  5. KETOPROFEN. [Concomitant]
     Active Substance: KETOPROFEN
     Indication: NECK PAIN
     Route: 065
     Dates: start: 20151207, end: 201512
  6. PERTUZUMAB [Suspect]
     Active Substance: PERTUZUMAB
     Indication: HER-2 POSITIVE BREAST CANCER
     Dosage: LOADING DOSE
     Route: 042
     Dates: start: 20150429
  7. DIPHENHYDRAMINE. [Concomitant]
     Active Substance: DIPHENHYDRAMINE
     Dosage: CHEMOTHERAPY PREMEDICATION
     Route: 065
     Dates: start: 20160105, end: 20160105
  8. PARACETAMOL [Concomitant]
     Active Substance: ACETAMINOPHEN
     Indication: PREMEDICATION
     Route: 065
     Dates: start: 20151216, end: 20151216
  9. ACETAMINOPHEN. [Concomitant]
     Active Substance: ACETAMINOPHEN
     Indication: ARTHRALGIA
     Route: 065
     Dates: start: 20150521
  10. DIPHENHYDRAMINE. [Concomitant]
     Active Substance: DIPHENHYDRAMINE
     Indication: PREMEDICATION
     Route: 065
     Dates: start: 20151216, end: 20151216
  11. DOXORUBICIN [Suspect]
     Active Substance: DOXORUBICIN
     Indication: HER-2 POSITIVE BREAST CANCER
     Route: 065
     Dates: start: 20150204
  12. TRASTUZUMAB EMTANSINE [Suspect]
     Active Substance: ADO-TRASTUZUMAB EMTANSINE
     Indication: HER-2 POSITIVE BREAST CANCER
     Dosage: RECENT DOSE PRIOR TO EVENT: 05/JAN/2016
     Route: 042
     Dates: start: 20150429
  13. CYCLOPHOSPHAMIDE. [Suspect]
     Active Substance: CYCLOPHOSPHAMIDE
     Indication: HER-2 POSITIVE BREAST CANCER
     Route: 065
     Dates: start: 20150204
  14. MILK OF MAGNESIA [Concomitant]
     Active Substance: MAGNESIUM HYDROXIDE
     Indication: CONSTIPATION
     Route: 065
     Dates: start: 20151124

REACTIONS (1)
  - Mouth haemorrhage [Recovered/Resolved]

NARRATIVE: CASE EVENT DATE: 20160109
